FAERS Safety Report 10335163 (Version 8)
Quarter: 2015Q2

REPORT INFORMATION
  Report Type: Spontaneous
  Country: US (occurrence: US)
  Receive Date: 20140723
  Receipt Date: 20150508
  Transmission Date: 20150821
  Serious: No
  Sender: FDA-Public Use
  Company Number: US-PFIZER INC-2014159065

PATIENT
  Age: 71 Year
  Sex: Male
  Weight: 105 kg

DRUGS (11)
  1. SUTENT [Suspect]
     Active Substance: SUNITINIB MALATE
     Indication: GASTROINTESTINAL STROMAL TUMOUR
     Dosage: 50 MG, CYCLIC (50 MG, 1X/DAY (3 WEEKS ON AND 1 WEEK OFF)
     Dates: start: 20140527, end: 20150101
  2. PLAVIX [Concomitant]
     Active Substance: CLOPIDOGREL BISULFATE
     Dosage: UNK
     Dates: start: 2009, end: 20150101
  3. AMLODIPINE [Concomitant]
     Active Substance: AMLODIPINE BESYLATE
     Dosage: UNK
  4. PRILOSEC [Concomitant]
     Active Substance: OMEPRAZOLE MAGNESIUM
     Dosage: UNK (3 TIMES WEEK)
     Dates: start: 2008
  5. SUTENT [Suspect]
     Active Substance: SUNITINIB MALATE
     Dosage: 25 MG, UNK
     Route: 048
     Dates: start: 20140528, end: 20141215
  6. METOPROLOL [Concomitant]
     Active Substance: METOPROLOL
     Dosage: UNK
     Dates: start: 2004
  7. ASPIRIN. [Concomitant]
     Active Substance: ASPIRIN
     Dosage: UNK
     Dates: start: 2004
  8. LISINOPRIL AND HYDROCHLOROTHIAZIDE [Concomitant]
     Active Substance: HYDROCHLOROTHIAZIDE\LISINOPRIL
     Dosage: UNK
     Dates: start: 201501
  9. NORVASC [Concomitant]
     Active Substance: AMLODIPINE BESYLATE
     Dosage: UNK
     Dates: start: 201501
  10. SUTENT [Suspect]
     Active Substance: SUNITINIB MALATE
     Dosage: THREE WEEKS ON / TWO WEEKS OFF
  11. PRAVACHOL [Concomitant]
     Active Substance: PRAVASTATIN SODIUM
     Dosage: UNK
     Dates: start: 2004

REACTIONS (13)
  - Extrasystoles [Recovered/Resolved]
  - Ageusia [Recovered/Resolved]
  - Epistaxis [Recovered/Resolved]
  - Palpitations [Unknown]
  - Oral pain [Unknown]
  - Headache [Recovered/Resolved]
  - Asthenia [Recovered/Resolved]
  - Dysgeusia [Recovered/Resolved]
  - Pain in jaw [Unknown]
  - Gastrointestinal stromal tumour [Not Recovered/Not Resolved]
  - Diarrhoea [Recovered/Resolved]
  - Fatigue [Recovered/Resolved]
  - Disease progression [Not Recovered/Not Resolved]

NARRATIVE: CASE EVENT DATE: 2014
